FAERS Safety Report 15099062 (Version 2)
Quarter: 2018Q3

REPORT INFORMATION
  Report Type: Spontaneous
  Country: IN (occurrence: IN)
  Receive Date: 20180702
  Receipt Date: 20180719
  Transmission Date: 20181010
  Serious: Yes (Other)
  Sender: FDA-Public Use
  Company Number: IN-PFIZER INC-2018252892

PATIENT
  Sex: Female

DRUGS (2)
  1. PACLITAXEL. [Suspect]
     Active Substance: PACLITAXEL
     Indication: OVARIAN EPITHELIAL CANCER
     Dosage: UNK
     Route: 064
  2. CARBOPLATIN. [Suspect]
     Active Substance: CARBOPLATIN
     Indication: OVARIAN CANCER RECURRENT
     Dosage: 450 MG, CYCLIC (SINGLE DOSE AT THREE WEEKLY INTERVALS)
     Route: 064

REACTIONS (3)
  - Maternal exposure during pregnancy [Unknown]
  - Premature baby [Unknown]
  - Foetal growth restriction [Unknown]
